FAERS Safety Report 15077069 (Version 1)
Quarter: 2018Q2

REPORT INFORMATION
  Report Type: Spontaneous
  Country: US (occurrence: US)
  Receive Date: 20180627
  Receipt Date: 20180627
  Transmission Date: 20180711
  Serious: Yes (Other)
  Sender: FDA-Public Use
  Company Number: US-ANIPHARMA-2018-US-010045

PATIENT
  Age: 57 Year
  Sex: Female

DRUGS (2)
  1. AMITRIPTYLINE (NON-SPECIFIC) [Suspect]
     Active Substance: AMITRIPTYLINE
  2. DULOXETINE. [Suspect]
     Active Substance: DULOXETINE

REACTIONS (2)
  - Pulmonary eosinophilia [Unknown]
  - Respiratory failure [Unknown]
